FAERS Safety Report 5143249-5 (Version None)
Quarter: 2006Q4

REPORT INFORMATION
  Report Type: 
  Country: None (occurrence: None)
  Receive Date: 20061031
  Receipt Date: 20061031
  Transmission Date: 20070319
  Serious: Yes (Hospitalization)
  Sender: FDA-Public Use
  Company Number: None

PATIENT
  Age: 48 Year
  Sex: Male
  Weight: 89.3586 kg

DRUGS (2)
  1. CLOZAPINE [Suspect]
     Indication: BIPOLAR DISORDER
     Dosage: 100 MG QAM + 200 MG QHS PO
     Route: 048
  2. CLOZAPINE [Suspect]
     Indication: SCHIZOAFFECTIVE DISORDER
     Dosage: 100 MG QAM + 200 MG QHS PO
     Route: 048

REACTIONS (4)
  - APPENDICECTOMY [None]
  - CONSTIPATION [None]
  - INTESTINAL OBSTRUCTION [None]
  - VOMITING [None]
